FAERS Safety Report 9485796 (Version 1)
Quarter: 2013Q3

REPORT INFORMATION
  Report Type: Spontaneous
  Country: US (occurrence: None)
  Receive Date: 20130827
  Receipt Date: 20130827
  Transmission Date: 20140515
  Serious: Yes (Other)
  Sender: FDA-Public Use
  Company Number: None

PATIENT
  Age: 2 Year
  Sex: Female

DRUGS (2)
  1. ENOXAPARIN [Suspect]
     Indication: DEEP VEIN THROMBOSIS
     Dosage: 15 MG BID SQ
     Route: 058
  2. ENOXAPARIN [Suspect]
     Indication: PERIPHERAL EMBOLISM
     Dosage: 15 MG BID SQ
     Route: 058

REACTIONS (3)
  - Fall [None]
  - Local swelling [None]
  - Swelling [None]
